FAERS Safety Report 16451302 (Version 1)
Quarter: 2019Q2

REPORT INFORMATION
  Report Type: Spontaneous
  Country: FR (occurrence: FR)
  Receive Date: 20190619
  Receipt Date: 20190619
  Transmission Date: 20190711
  Serious: Yes (Life-Threatening, Hospitalization)
  Sender: FDA-Public Use
  Company Number: FR-PFIZER INC-2019257232

PATIENT
  Age: 40 Year
  Sex: Male

DRUGS (2)
  1. PREGABALIN. [Suspect]
     Active Substance: PREGABALIN
     Route: 065
  2. RIVOTRIL [Suspect]
     Active Substance: CLONAZEPAM
     Route: 065

REACTIONS (5)
  - Intentional overdose [Recovered/Resolved]
  - Mydriasis [Recovered/Resolved]
  - Bradypnoea [Recovered/Resolved]
  - Intentional product misuse [Recovered/Resolved]
  - Somnolence [Recovered/Resolved]
